FAERS Safety Report 17689193 (Version 1)
Quarter: 2020Q2

REPORT INFORMATION
  Report Type: Spontaneous
  Country: US (occurrence: US)
  Receive Date: 20200419
  Receipt Date: 20200419
  Transmission Date: 20200714
  Serious: No
  Sender: FDA-Public Use
  Company Number: None

PATIENT
  Sex: Female

DRUGS (1)
  1. HUMIRA [Suspect]
     Active Substance: ADALIMUMAB
     Indication: GASTROENTERITIS
     Dosage: 80MG ONCE, THEN MAINT DOSE UNDER THE SKIN
     Route: 058
     Dates: start: 20200401

REACTIONS (4)
  - Incorrect dose administered [None]
  - Hypersensitivity [None]
  - Injection site rash [None]
  - Menstruation irregular [None]
